FAERS Safety Report 16230566 (Version 2)
Quarter: 2019Q3

REPORT INFORMATION
  Report Type: Spontaneous
  Country: DE (occurrence: DE)
  Receive Date: 20190423
  Receipt Date: 20190915
  Transmission Date: 20191004
  Serious: Yes (Hospitalization)
  Sender: FDA-Public Use
  Company Number: DE-COLLEGIUM PHARMACEUTICAL, INC.-DE-2019COL000150

PATIENT
  Age: 53 Year
  Sex: Female

DRUGS (7)
  1. VITAMIN A                          /00056001/ [Concomitant]
     Active Substance: RETINOL
     Indication: PRODUCT USED FOR UNKNOWN INDICATION
     Dosage: UNK
  2. LORATADINE. [Concomitant]
     Active Substance: LORATADINE
     Indication: PRODUCT USED FOR UNKNOWN INDICATION
     Dosage: UNK
  3. TAPENTADOL EXTENDED RELEASE [Suspect]
     Active Substance: TAPENTADOL
     Indication: FIBROMYALGIA
  4. S-ADENOSYL-L-METHIONINE [Concomitant]
     Active Substance: ADEMETIONINE
     Indication: PRODUCT USED FOR UNKNOWN INDICATION
     Dosage: UNK
     Dates: start: 201812
  5. TAPENTADOL EXTENDED RELEASE [Suspect]
     Active Substance: TAPENTADOL
     Indication: PAIN
     Dosage: 50 MG, BID
     Route: 048
     Dates: start: 201402, end: 20181228
  6. VITAMIN B COMPLEX [Concomitant]
     Active Substance: CYANOCOBALAMIN\DEXPANTHENOL\NIACINAMIDE\PYRIDOXINE HYDROCHLORIDE\RIBOFLAVIN 5^-PHOSPHATE SODIUM\THIAMINE HYDROCHLORIDE\VITAMIN B COMPLEX
     Indication: PRODUCT USED FOR UNKNOWN INDICATION
     Dosage: UNK
  7. HERBAL EXTRACT NOS [Concomitant]
     Active Substance: HERBALS
     Indication: PRODUCT USED FOR UNKNOWN INDICATION
     Dosage: UNK

REACTIONS (17)
  - Blood antidiuretic hormone abnormal [Unknown]
  - Cardiovascular disorder [Unknown]
  - Paroxysmal sympathetic hyperactivity [Unknown]
  - Body temperature abnormal [Unknown]
  - Hypotension [Unknown]
  - Weight increased [Unknown]
  - Hypertension [Unknown]
  - Restlessness [Unknown]
  - Feeling of body temperature change [Unknown]
  - Fluid imbalance [Unknown]
  - Irritable bowel syndrome [Unknown]
  - Psychomotor hyperactivity [Unknown]
  - Blood prolactin increased [Unknown]
  - Ill-defined disorder [Unknown]
  - Gluten sensitivity [Unknown]
  - Nasal operation [Unknown]
  - Infection [Unknown]

NARRATIVE: CASE EVENT DATE: 2015
